FAERS Safety Report 6618009-6 (Version None)
Quarter: 2010Q1

REPORT INFORMATION
  Report Type: 
  Country: None (occurrence: None)
  Receive Date: 20100308
  Receipt Date: 20100301
  Transmission Date: 20100710
  Serious: Yes (Other)
  Sender: FDA-Public Use
  Company Number: US-SANOFI-AVENTIS-2010SA012230

PATIENT
  Age: 64 Year
  Sex: Male

DRUGS (1)
  1. LOVENOX [Suspect]
     Dosage: 135-140 MG
     Route: 065
     Dates: start: 20090901

REACTIONS (1)
  - BONE DISORDER [None]
